FAERS Safety Report 9260068 (Version 1)
Quarter: 2013Q2

REPORT INFORMATION
  Report Type: Spontaneous
  Country: NL (occurrence: NL)
  Receive Date: 20130429
  Receipt Date: 20130429
  Transmission Date: 20140414
  Serious: Yes (Life-Threatening)
  Sender: FDA-Public Use
  Company Number: NL-JNJFOC-20130411205

PATIENT
  Age: 34 Year
  Sex: Male

DRUGS (1)
  1. RISPERIDAL [Suspect]
     Indication: PRODUCT USED FOR UNKNOWN INDICATION
     Route: 065
     Dates: start: 20121019

REACTIONS (1)
  - Suicidal ideation [Recovered/Resolved]
